FAERS Safety Report 12253884 (Version 2)
Quarter: 2016Q2

REPORT INFORMATION
  Report Type: Report from Study
  Country: IT (occurrence: IT)
  Receive Date: 20160411
  Receipt Date: 20160421
  Transmission Date: 20160815
  Serious: Yes (Other)
  Sender: FDA-Public Use
  Company Number: IT-SA-2016SA068695

PATIENT
  Age: 76 Year
  Sex: Male
  Weight: 75 kg

DRUGS (5)
  1. OXALIPLATIN. [Suspect]
     Active Substance: OXALIPLATIN
     Indication: COLORECTAL CANCER METASTATIC
     Route: 065
     Dates: start: 20141113, end: 20141113
  2. IRINOTECAN [Concomitant]
     Active Substance: IRINOTECAN
     Indication: COLORECTAL CANCER
     Dates: start: 201310, end: 201403
  3. FOLINIC ACID [Concomitant]
     Active Substance: LEUCOVORIN
     Indication: COLORECTAL CANCER
  4. 5-FU [Concomitant]
     Active Substance: FLUOROURACIL
     Indication: COLORECTAL CANCER
  5. OXALIPLATIN. [Suspect]
     Active Substance: OXALIPLATIN
     Indication: COLORECTAL CANCER METASTATIC
     Route: 065
     Dates: start: 20070101

REACTIONS (12)
  - Back pain [Recovering/Resolving]
  - Chills [Recovering/Resolving]
  - Hyperkalaemia [Recovering/Resolving]
  - Anaemia [Recovering/Resolving]
  - Blood creatinine increased [Recovered/Resolved]
  - Blood bilirubin increased [Recovering/Resolving]
  - Immune system disorder [Recovering/Resolving]
  - Pyrexia [Recovering/Resolving]
  - Coombs test positive [Recovering/Resolving]
  - Haemolytic uraemic syndrome [Recovering/Resolving]
  - Haptoglobin decreased [Recovering/Resolving]
  - Thrombocytopenia [Recovering/Resolving]

NARRATIVE: CASE EVENT DATE: 20141113
